FAERS Safety Report 7076342-0 (Version None)
Quarter: 2010Q4

REPORT INFORMATION
  Report Type: 
  Country: None (occurrence: None)
  Receive Date: 20101101
  Receipt Date: 20101022
  Transmission Date: 20110411
  Serious: Yes (Other)
  Sender: FDA-Public Use
  Company Number: US-JNJFOC-20101007027

PATIENT
  Sex: Male
  Weight: 58.97 kg

DRUGS (7)
  1. LEVAQUIN [Suspect]
     Indication: INFECTION PROPHYLAXIS
     Route: 048
  2. DIOVAN [Concomitant]
     Indication: HYPERTENSION
     Route: 048
  3. METOPROLOL [Concomitant]
     Indication: HEART RATE IRREGULAR
     Route: 048
  4. OXYBUTYNIN [Concomitant]
     Indication: HYPERTONIC BLADDER
     Route: 048
  5. SIMVASTATIN [Concomitant]
     Indication: BLOOD CHOLESTEROL INCREASED
     Route: 048
  6. NIACIN [Concomitant]
     Route: 048
  7. MULTI-VITAMINS [Concomitant]
     Indication: NUTRITIONAL SUPPORT
     Route: 048

REACTIONS (2)
  - CARDIAC DISORDER [None]
  - RESPIRATORY RATE DECREASED [None]
